FAERS Safety Report 11141571 (Version 1)
Quarter: 2015Q2

REPORT INFORMATION
  Report Type: Spontaneous
  Country: US (occurrence: US)
  Receive Date: 20150525
  Receipt Date: 20150525
  Transmission Date: 20150821
  Serious: Yes (Other)
  Sender: FDA-Public Use
  Company Number: US-JNJFOC-20130803187

PATIENT
  Sex: Male

DRUGS (2)
  1. RISPERDAL [Suspect]
     Active Substance: RISPERIDONE
     Indication: ANTIDEPRESSANT THERAPY
     Route: 048
     Dates: start: 20091109, end: 20100207
  2. RISPERDAL [Suspect]
     Active Substance: RISPERIDONE
     Indication: PSYCHOTIC DISORDER
     Route: 048
     Dates: start: 20091109, end: 20100207

REACTIONS (4)
  - Dizziness [Unknown]
  - Asthenia [Unknown]
  - Diabetes mellitus [Unknown]
  - Stress [Unknown]

NARRATIVE: CASE EVENT DATE: 201002
